FAERS Safety Report 12265397 (Version 1)
Quarter: 2016Q2

REPORT INFORMATION
  Report Type: Report from Study
  Country: US (occurrence: US)
  Receive Date: 20160413
  Receipt Date: 20160413
  Transmission Date: 20160815
  Serious: Yes (Death, Other)
  Sender: FDA-Public Use
  Company Number: US-MDT-ADR-2016-00674

PATIENT
  Age: 48 Year
  Sex: Male

DRUGS (5)
  1. BUPIVACAINE. [Suspect]
     Active Substance: BUPIVACAINE
     Dosage: 9.766MG/DAY
     Route: 037
     Dates: start: 20140804
  2. DILAUDID [Suspect]
     Active Substance: HYDROMORPHONE HYDROCHLORIDE
     Dosage: 0.6511MG/DAY
     Route: 037
     Dates: start: 20140804
  3. NORTRIPTYLINE [Suspect]
     Active Substance: NORTRIPTYLINE
  4. OXYCODONE ER [Suspect]
     Active Substance: OXYCODONE
  5. BACLOFEN. [Suspect]
     Active Substance: BACLOFEN
     Dosage: 130.22MCG/DAY
     Route: 037
     Dates: start: 20140804

REACTIONS (2)
  - Medical device site pain [Fatal]
  - Renal cell carcinoma [Fatal]
